FAERS Safety Report 10626982 (Version 1)
Quarter: 2014Q4

REPORT INFORMATION
  Report Type: Spontaneous
  Country: US (occurrence: US)
  Receive Date: 20141204
  Receipt Date: 20141204
  Transmission Date: 20150529
  Serious: Yes (Other)
  Sender: FDA-Public Use
  Company Number: US-GILEAD-2014-0125354

PATIENT
  Sex: Male

DRUGS (2)
  1. RIBAVIRIN. [Concomitant]
     Active Substance: RIBAVIRIN
  2. SOVALDI [Suspect]
     Active Substance: SOFOSBUVIR
     Indication: PRODUCT USED FOR UNKNOWN INDICATION
     Dosage: UNK
     Route: 065
     Dates: end: 20140611

REACTIONS (5)
  - Drug ineffective [Unknown]
  - Viral load increased [Unknown]
  - Wheezing [Not Recovered/Not Resolved]
  - Anaemia [Unknown]
  - Fatigue [Unknown]

NARRATIVE: CASE EVENT DATE: 201409
